FAERS Safety Report 8204667-1 (Version None)
Quarter: 2012Q1

REPORT INFORMATION
  Report Type: 
  Country: None (occurrence: None)
  Receive Date: 20120313
  Receipt Date: 20120309
  Transmission Date: 20120608
  Serious: Yes (Life-Threatening, Hospitalization)
  Sender: FDA-Public Use
  Company Number: ES-PFIZER INC-2012064194

PATIENT
  Age: 66 Year
  Sex: Male

DRUGS (6)
  1. ACFOL [Concomitant]
     Dosage: 5 MG, 1X/DAY
     Route: 048
     Dates: start: 20110401
  2. VALSARTAN [Concomitant]
     Indication: HYPERTENSION
     Dosage: 80 MG, 1X/DAY
     Route: 048
     Dates: start: 20110401
  3. NORVASC [Suspect]
     Indication: HYPERTENSION
     Dosage: 5 MG, 1X/DAY
     Route: 048
     Dates: start: 20100801, end: 20111015
  4. VERAPAMIL HCL [Interacting]
     Indication: HYPERTENSION
     Dosage: 240 MG, 1X/DAY
     Route: 048
     Dates: start: 20100101, end: 20111015
  5. CERTICAN [Concomitant]
     Dosage: 0.75 MG, 1X/DAY
     Route: 048
     Dates: start: 20100101
  6. LUMINALETAS [Concomitant]
     Dosage: 30 MG, 1X/DAY
     Route: 048
     Dates: start: 20100801

REACTIONS (3)
  - DRUG INTERACTION [None]
  - ATRIOVENTRICULAR BLOCK [None]
  - NODAL RHYTHM [None]
